FAERS Safety Report 4996607-3 (Version None)
Quarter: 2006Q2

REPORT INFORMATION
  Report Type: 
  Country: None (occurrence: None)
  Receive Date: 20060505
  Receipt Date: 20060425
  Transmission Date: 20061013
  Serious: Yes (Other)
  Sender: FDA-Public Use
  Company Number: 2006056326

PATIENT
  Age: 65 Year
  Sex: Female

DRUGS (2)
  1. NORPACE CR [Suspect]
     Indication: ATRIAL FIBRILLATION
     Dosage: 500 MG (250 MG, 2 IN 1 D)
  2. ENBREL [Concomitant]

REACTIONS (4)
  - ARRHYTHMIA [None]
  - CARDIOACTIVE DRUG LEVEL DECREASED [None]
  - DRUG LEVEL CHANGED [None]
  - THERAPEUTIC RESPONSE UNEXPECTED WITH DRUG SUBSTITUTION [None]
